FAERS Safety Report 5718379-7 (Version None)
Quarter: 2008Q2

REPORT INFORMATION
  Report Type: 
  Country: None (occurrence: None)
  Receive Date: 20080425
  Receipt Date: 20080417
  Transmission Date: 20081010
  Serious: Yes (Hospitalization)
  Sender: FDA-Public Use
  Company Number: FR-ELI_LILLY_AND_COMPANY-FR200804004704

PATIENT
  Age: 71 Year
  Sex: Female

DRUGS (6)
  1. FORTEO [Suspect]
     Indication: OSTEOPOROSIS
     Dosage: 20 UG, DAILY (1/D)
     Route: 058
     Dates: start: 20060618
  2. FORADIL [Concomitant]
  3. COVERSYL /FRA/ [Concomitant]
  4. ATROVENT [Concomitant]
     Route: 055
  5. BRICANYL [Concomitant]
     Route: 055
  6. OXYGEN [Concomitant]
     Indication: RESPIRATORY FAILURE

REACTIONS (1)
  - LUNG NEOPLASM MALIGNANT [None]
